FAERS Safety Report 15753836 (Version 4)
Quarter: 2018Q4

REPORT INFORMATION
  Report Type: Spontaneous
  Country: AU (occurrence: AU)
  Receive Date: 20181222
  Receipt Date: 20181224
  Transmission Date: 20190205
  Serious: Yes (Hospitalization, Other)
  Sender: FDA-Public Use
  Company Number: PHHY2018AU158855

PATIENT
  Age: 34 Year
  Sex: Female
  Weight: 146 kg

DRUGS (5)
  1. MYCOPHENOLATE MOFETIL. [Suspect]
     Active Substance: MYCOPHENOLATE MOFETIL
     Indication: PYODERMA GANGRENOSUM
     Dosage: 1 G, BID
     Route: 048
     Dates: start: 20150102
  2. CICLOSPORIN [Suspect]
     Active Substance: CYCLOSPORINE
     Indication: PYODERMA GANGRENOSUM
     Dosage: 200 MG, BID
     Route: 048
     Dates: start: 20150713, end: 20150802
  3. ADALIMUMAB [Suspect]
     Active Substance: ADALIMUMAB
     Indication: PYODERMA GANGRENOSUM
     Dosage: UNK
     Route: 065
  4. ETANERCEPT [Suspect]
     Active Substance: ETANERCEPT
     Indication: PYODERMA GANGRENOSUM
     Dosage: UNK
     Route: 065
  5. METHYLPREDNISOLONE. [Suspect]
     Active Substance: METHYLPREDNISOLONE
     Indication: PYODERMA GANGRENOSUM
     Dosage: UNK
     Route: 065

REACTIONS (7)
  - Pain of skin [Not Recovered/Not Resolved]
  - Drug effect incomplete [Not Recovered/Not Resolved]
  - Disease progression [Unknown]
  - Quality of life decreased [Unknown]
  - Product use in unapproved indication [Unknown]
  - Acute kidney injury [Recovered/Resolved]
  - Skin ulcer [Not Recovered/Not Resolved]

NARRATIVE: CASE EVENT DATE: 20150102
